FAERS Safety Report 14285712 (Version 23)
Quarter: 2021Q4

REPORT INFORMATION
  Report Type: Spontaneous
  Country: IT (occurrence: IT)
  Receive Date: 20171214
  Receipt Date: 20211022
  Transmission Date: 20220303
  Serious: Yes (Life-Threatening, Hospitalization, Congenital Anomaly, Other)
  Sender: FDA-Public Use
  Company Number: None

PATIENT
  Age: 33 Week
  Sex: Female
  Weight: 1.97 kg

DRUGS (11)
  1. ACETAMINOPHEN [Suspect]
     Active Substance: ACETAMINOPHEN
     Indication: Product used for unknown indication
     Dosage: 1-2 G/DAY (4TH MONTH TO DELIVERY)
     Route: 064
  2. ACETAMINOPHEN [Suspect]
     Active Substance: ACETAMINOPHEN
     Dosage: 8-9 G/DAY (2ND TO 3RD MONTH OF GESTATION)
     Route: 064
  3. ACETAMINOPHEN [Suspect]
     Active Substance: ACETAMINOPHEN
     Dosage: 1 DF, QD
     Route: 064
  4. ACETAMINOPHEN [Suspect]
     Active Substance: ACETAMINOPHEN
     Dosage: 1 DF, QD
     Route: 064
  5. DICLOFENAC SODIUM [Suspect]
     Active Substance: DICLOFENAC SODIUM
     Indication: Product used for unknown indication
     Dosage: 75 MG, QD
     Route: 064
  6. DICLOFENAC SODIUM [Suspect]
     Active Substance: DICLOFENAC SODIUM
     Dosage: FROM 2ND TO THE 3RD MONTH OF PREGNANCY: 8 WEEKS
     Route: 064
  7. NIMESULIDE [Suspect]
     Active Substance: NIMESULIDE
     Indication: Product used for unknown indication
     Dosage: 1DF=100-200MG DAILY (FROM 3 MONTHS PRIOR TO CONCEPTION TO 1 MONTH AFTER CONCEPTION)
     Route: 064
  8. NIMESULIDE [Suspect]
     Active Substance: NIMESULIDE
     Dosage: 1 DF, QD 1 DF=100-200MG/DAY FROM 3 MONTHS PRIOR TO CONCEPTION TO 1 MONTH AFTER CONCEPTION
     Route: 064
  9. NIMESULIDE [Suspect]
     Active Substance: NIMESULIDE
     Dosage: 100MG FROM 4 M
     Route: 064
  10. NIMESULIDE [Suspect]
     Active Substance: NIMESULIDE
     Dosage: 1 DF, QD
     Route: 064
  11. NIMESULIDE [Suspect]
     Active Substance: NIMESULIDE
     Dosage: 100 MG, QD
     Route: 064

REACTIONS (11)
  - Neonatal respiratory distress syndrome [Recovered/Resolved]
  - Ductus arteriosus stenosis foetal [Recovered/Resolved]
  - Bradycardia neonatal [Recovered/Resolved]
  - Renal failure neonatal [Recovered/Resolved]
  - Cyanosis neonatal [Recovered/Resolved]
  - Premature baby [Unknown]
  - Blood creatinine increased [Recovered/Resolved]
  - Polyuria [Unknown]
  - Foetal exposure during pregnancy [Unknown]
  - Emphysema [Unknown]
  - Neonatal respiratory acidosis [Recovered/Resolved]
